FAERS Safety Report 8442965 (Version 3)
Quarter: 2013Q4

REPORT INFORMATION
  Report Type: Spontaneous
  Country: US (occurrence: US)
  Receive Date: 20120306
  Receipt Date: 20131121
  Transmission Date: 20140711
  Serious: Yes (Hospitalization)
  Sender: FDA-Public Use
  Company Number: US-BAYER-2012-019910

PATIENT
  Age: 33 Year
  Sex: Female
  Weight: 101 kg

DRUGS (9)
  1. OCELLA [Suspect]
     Indication: CONTRACEPTION
     Dosage: UNK
     Dates: start: 20080805, end: 201002
  2. YASMIN [Suspect]
     Indication: CONTRACEPTION
     Dosage: UNK
     Dates: start: 200610, end: 20080805
  3. YASMIN [Suspect]
     Indication: MENSTRUATION IRREGULAR
  4. CEPHALEXIN [Concomitant]
     Dosage: UNK
     Dates: start: 20091022, end: 20091029
  5. LEXAPRO [Concomitant]
     Indication: DEPRESSION
     Dosage: UNK
     Dates: start: 20061017, end: 20100124
  6. VALTREX [Concomitant]
     Indication: GENITAL HERPES
     Dosage: UNK
     Dates: start: 20061013, end: 20091122
  7. HYDROCODONE W/APAP [Concomitant]
  8. ANTACID [CALCIUM CARBONATE] [Concomitant]
  9. ZANTAC [Concomitant]

REACTIONS (5)
  - Cholecystectomy [None]
  - Biliary dyskinesia [None]
  - Injury [None]
  - Abdominal pain [None]
  - Pain [None]
